FAERS Safety Report 5499650-3 (Version None)
Quarter: 2007Q4

REPORT INFORMATION
  Report Type: 
  Country: None (occurrence: None)
  Receive Date: 20071026
  Receipt Date: 20071017
  Transmission Date: 20080405
  Serious: Yes (Hospitalization)
  Sender: FDA-Public Use
  Company Number: JP-SANOFI-SYNTHELABO-A01200710336

PATIENT
  Sex: Male
  Weight: 56 kg

DRUGS (9)
  1. FAMOTIDINE [Concomitant]
     Indication: GASTRIC ULCER
     Route: 048
     Dates: start: 20070815
  2. FLUVOXAMINE MALEATE [Concomitant]
     Indication: DEPRESSION
     Route: 048
     Dates: start: 20070810
  3. DOXAZOSIN MESYLATE [Concomitant]
     Indication: HYPERTENSION
     Route: 048
     Dates: start: 20050120
  4. VESICARE [Concomitant]
     Indication: NOCTURIA
     Route: 048
     Dates: start: 20070109
  5. BLOPRESS [Concomitant]
     Indication: HYPERTENSION
     Route: 048
     Dates: start: 20060203
  6. PLAVIX [Suspect]
     Indication: CEREBRAL INFARCTION
     Route: 048
     Dates: start: 20070729, end: 20070919
  7. NORVASC [Concomitant]
     Indication: HYPERTENSION
     Route: 048
     Dates: start: 20040514
  8. WARFARIN POTASSIUM [Interacting]
     Indication: ATRIAL FIBRILLATION
     Route: 048
     Dates: end: 20070728
  9. WARFARIN POTASSIUM [Interacting]
     Route: 048
     Dates: start: 20070729, end: 20070919

REACTIONS (4)
  - DRUG INTERACTION [None]
  - INTERNATIONAL NORMALISED RATIO INCREASED [None]
  - PYREXIA [None]
  - RENAL IMPAIRMENT [None]
